FAERS Safety Report 8386560-7 (Version None)
Quarter: 2012Q2

REPORT INFORMATION
  Report Type: 
  Country: None (occurrence: None)
  Receive Date: 20120525
  Receipt Date: 20110728
  Transmission Date: 20120825
  Serious: No
  Sender: FDA-Public Use
  Company Number: US-GLAXOSMITHKLINE-A0938795A

PATIENT
  Age: 52 Year
  Sex: Female

DRUGS (4)
  1. ASTEPRO [Suspect]
     Indication: SINUSITIS
     Dosage: 2SPR TWICE PER DAY
     Route: 045
     Dates: start: 20110714, end: 20110725
  2. SINGULAIR [Concomitant]
  3. PROAIR HFA [Concomitant]
  4. VERAMYST [Suspect]
     Indication: SINUSITIS
     Dosage: 2SPR PER DAY
     Route: 045
     Dates: start: 20110714, end: 20110725

REACTIONS (3)
  - TONGUE ULCERATION [None]
  - GLOSSITIS [None]
  - SWOLLEN TONGUE [None]
